FAERS Safety Report 11606243 (Version 1)
Quarter: 2015Q3

REPORT INFORMATION
  Report Type: Spontaneous
  Country: US (occurrence: US)
  Receive Date: 20150916
  Receipt Date: 20150916
  Transmission Date: 20151125
  Serious: No
  Sender: FDA-Public Use
  Company Number: US-ELI_LILLY_AND_COMPANY-US201403000277

PATIENT
  Age: 72 Year
  Sex: Male

DRUGS (6)
  1. HUMALOG [Suspect]
     Active Substance: INSULIN LISPRO
     Indication: TYPE 1 DIABETES MELLITUS
     Dosage: UNK, QID AS NEEDED
     Route: 065
     Dates: start: 201306
  2. HUMALOG [Suspect]
     Active Substance: INSULIN LISPRO
     Dosage: UNK, QID AS NEEDED
     Route: 065
  3. HUMALOG [Suspect]
     Active Substance: INSULIN LISPRO
     Dosage: UNK, QID AS NEEDED
     Route: 065
  4. HUMALOG [Suspect]
     Active Substance: INSULIN LISPRO
     Dosage: UNK, QID AS NEEDED
     Route: 065
  5. HUMULIN 30/70 [Concomitant]
     Active Substance: INSULIN HUMAN
     Indication: TYPE 1 DIABETES MELLITUS
     Dosage: 20 U, EACH MORNING
     Route: 065
  6. HUMULIN 30/70 [Concomitant]
     Active Substance: INSULIN HUMAN
     Dosage: 20 U, AT NIGHT
     Route: 065

REACTIONS (4)
  - Blood glucose increased [Unknown]
  - Drug ineffective [Unknown]
  - Incorrect product storage [Unknown]
  - Lethargy [Unknown]

NARRATIVE: CASE EVENT DATE: 20140214
